FAERS Safety Report 24526984 (Version 1)
Quarter: 2024Q4

REPORT INFORMATION
  Report Type: Spontaneous
  Country: NL (occurrence: NL)
  Receive Date: 20241021
  Receipt Date: 20241021
  Transmission Date: 20250114
  Serious: Yes (Hospitalization, Other)
  Sender: AMNEAL
  Company Number: NL-AMNEAL PHARMACEUTICALS-2024-AMRX-03757

PATIENT
  Age: 21 Year
  Sex: Male

DRUGS (3)
  1. BACLOFEN [Suspect]
     Active Substance: BACLOFEN
     Indication: Cerebral palsy
     Dosage: 850 MICROGRAM/24 HRS
     Route: 037
  2. BACLOFEN [Suspect]
     Active Substance: BACLOFEN
     Indication: Epilepsy
  3. MIDAZOLAM [Concomitant]
     Active Substance: MIDAZOLAM
     Indication: Epilepsy
     Dosage: UNK
     Route: 045

REACTIONS (9)
  - Hypoxic-ischaemic encephalopathy [Recovering/Resolving]
  - Respiratory arrest [Recovered/Resolved]
  - Respiratory acidosis [Recovered/Resolved]
  - Toxicity to various agents [Recovered/Resolved]
  - Implant site extravasation [Recovered/Resolved]
  - Device issue [Unknown]
  - Mydriasis [Recovered/Resolved]
  - Hypotonia [Recovered/Resolved]
  - Sinus bradycardia [Recovered/Resolved]
